FAERS Safety Report 18469495 (Version 2)
Quarter: 2020Q4

REPORT INFORMATION
  Report Type: Report from Study
  Country: RU (occurrence: RU)
  Receive Date: 20201105
  Receipt Date: 20201120
  Transmission Date: 20210114
  Serious: Yes (Life-Threatening)
  Sender: FDA-Public Use
  Company Number: RU-TAKEDA-2020TUS046980

PATIENT

DRUGS (2)
  1. IDURSULFASE [Suspect]
     Active Substance: IDURSULFASE
     Indication: MUCOPOLYSACCHARIDOSIS II
     Dosage: UNK
     Route: 042
     Dates: start: 20110531
  2. IDURSULFASE [Suspect]
     Active Substance: IDURSULFASE
     Dosage: 0.5 MILLIGRAM/KILOGRAM, 1/WEEK
     Route: 042
     Dates: start: 20130401

REACTIONS (1)
  - Atonic seizures [Recovered/Resolved]

NARRATIVE: CASE EVENT DATE: 20201027
